FAERS Safety Report 23888045 (Version 2)
Quarter: 2024Q4

REPORT INFORMATION
  Report Type: Spontaneous
  Country: PT (occurrence: PT)
  Receive Date: 20240523
  Receipt Date: 20241015
  Transmission Date: 20250115
  Serious: Yes (Other)
  Sender: ALEXION PHARMACEUTICALS
  Company Number: None

PATIENT
  Age: 63 Year

DRUGS (25)
  1. TAGRISSO [Suspect]
     Active Substance: OSIMERTINIB
     Indication: Lung adenocarcinoma
     Dosage: 1 COMP/DIA
  2. TAGRISSO [Suspect]
     Active Substance: OSIMERTINIB
     Dosage: 1 COMP/DIA
  3. TAGRISSO [Suspect]
     Active Substance: OSIMERTINIB
     Dosage: 1 COMP/DIA
  4. TAGRISSO [Suspect]
     Active Substance: OSIMERTINIB
     Dosage: 1 COMP/DIA
  5. GLYCOPYRROLATE\INDACATEROL\MOMETASONE FUROATE [Concomitant]
     Active Substance: GLYCOPYRROLATE\INDACATEROL\MOMETASONE FUROATE
     Dosage: ENERZAIR BREEZHALER? 114 MCG/ 46 MCG/136 MCG DE MANH? ANTES DE SAIR (PNEUMOLOGIA)
  6. GLYCOPYRROLATE\INDACATEROL\MOMETASONE FUROATE [Concomitant]
     Active Substance: GLYCOPYRROLATE\INDACATEROL\MOMETASONE FUROATE
     Dosage: ENERZAIR BREEZHALER? 114 MCG/ 46 MCG/136 MCG DE MANH? ANTES DE SAIR (PNEUMOLOGIA)
  7. GLYCOPYRROLATE\INDACATEROL\MOMETASONE FUROATE [Concomitant]
     Active Substance: GLYCOPYRROLATE\INDACATEROL\MOMETASONE FUROATE
     Dosage: ENERZAIR BREEZHALER? 114 MCG/ 46 MCG/136 MCG DE MANH? ANTES DE SAIR (PNEUMOLOGIA)
  8. GLYCOPYRROLATE\INDACATEROL\MOMETASONE FUROATE [Concomitant]
     Active Substance: GLYCOPYRROLATE\INDACATEROL\MOMETASONE FUROATE
     Dosage: ENERZAIR BREEZHALER? 114 MCG/ 46 MCG/136 MCG DE MANH? ANTES DE SAIR (PNEUMOLOGIA)
  9. PANTOPRAZOLE SODIUM [Concomitant]
     Active Substance: PANTOPRAZOLE SODIUM
     Dosage: PANTOPRAZOLE 40 MG - 1 ID ON AN EMPTY STOMACH (DOCTOR OF FAMILY)
  10. FLUTICASONE FUROATE [Concomitant]
     Active Substance: FLUTICASONE FUROATE
     Dosage: SUSPENSION FOR NASAL SPRAY
  11. FLUTICASONE FUROATE [Concomitant]
     Active Substance: FLUTICASONE FUROATE
     Dosage: SUSPENSION FOR NASAL SPRAY
  12. FLUTICASONE FUROATE [Concomitant]
     Active Substance: FLUTICASONE FUROATE
     Dosage: SUSPENSION FOR NASAL SPRAY
  13. FLUTICASONE FUROATE [Concomitant]
     Active Substance: FLUTICASONE FUROATE
     Dosage: SUSPENSION FOR NASAL SPRAY
  14. FLUTICASONE FUROATE [Concomitant]
     Active Substance: FLUTICASONE FUROATE
     Dosage: AVAMYS NEBULIZADOR
  15. FLUTICASONE FUROATE [Concomitant]
     Active Substance: FLUTICASONE FUROATE
     Dosage: AVAMYS NEBULIZADOR
  16. FLUTICASONE FUROATE [Concomitant]
     Active Substance: FLUTICASONE FUROATE
     Dosage: AVAMYS NEBULIZADOR
  17. FLUTICASONE FUROATE [Concomitant]
     Active Substance: FLUTICASONE FUROATE
     Dosage: AVAMYS NEBULIZADOR
  18. FENOTEROL HYDROBROMIDE\IPRATROPIUM BROMIDE [Concomitant]
     Active Substance: FENOTEROL HYDROBROMIDE\IPRATROPIUM BROMIDE
     Dosage: BERODUAL PA? IPRATROPIUM BROMIDE + PHENOTEROL -SOS
  19. FENOTEROL HYDROBROMIDE\IPRATROPIUM BROMIDE [Concomitant]
     Active Substance: FENOTEROL HYDROBROMIDE\IPRATROPIUM BROMIDE
     Dosage: BERODUAL PA? IPRATROPIUM BROMIDE + PHENOTEROL -SOS
  20. FENOTEROL HYDROBROMIDE\IPRATROPIUM BROMIDE [Concomitant]
     Active Substance: FENOTEROL HYDROBROMIDE\IPRATROPIUM BROMIDE
     Dosage: BERODUAL PA? IPRATROPIUM BROMIDE + PHENOTEROL -SOS
  21. FENOTEROL HYDROBROMIDE\IPRATROPIUM BROMIDE [Concomitant]
     Active Substance: FENOTEROL HYDROBROMIDE\IPRATROPIUM BROMIDE
     Dosage: BERODUAL PA? IPRATROPIUM BROMIDE + PHENOTEROL -SOS
  22. ESCITALOPRAM [Concomitant]
     Active Substance: ESCITALOPRAM OXALATE
     Dosage: ESCITALOPRAM 20 MG - 1 DAY ON AN EMPTY STOMACH (DOCTOR OF FAMILY)
  23. ESCITALOPRAM [Concomitant]
     Active Substance: ESCITALOPRAM OXALATE
     Dosage: ESCITALOPRAM 20 MG - 1 DAY ON AN EMPTY STOMACH (DOCTOR OF FAMILY)
  24. MONTELUKAST [Concomitant]
     Active Substance: MONTELUKAST
     Dosage: 10 MILLIGRAM
  25. MONTELUKAST [Concomitant]
     Active Substance: MONTELUKAST
     Dosage: 10 MILLIGRAM

REACTIONS (7)
  - Oral mucosal erythema [Recovering/Resolving]
  - Haematoma [Not Recovered/Not Resolved]
  - Oral discomfort [Recovering/Resolving]
  - Lip erythema [Recovering/Resolving]
  - Oral discomfort [Recovering/Resolving]
  - Diarrhoea [Not Recovered/Not Resolved]
  - Haemoptysis [Recovered/Resolved]
